FAERS Safety Report 4738145-9 (Version None)
Quarter: 2005Q3

REPORT INFORMATION
  Report Type: 
  Country: None (occurrence: None)
  Receive Date: 20050802
  Receipt Date: 20050718
  Transmission Date: 20060218
  Serious: Yes (Other)
  Sender: FDA-Public Use
  Company Number: B0321501A

PATIENT
  Age: 49 Year
  Sex: Male

DRUGS (1)
  1. ZYBAN [Suspect]
     Indication: SMOKING CESSATION THERAPY
     Dosage: 300 MG PER DAY
     Dates: start: 20031130, end: 20031218

REACTIONS (1)
  - PARKINSONISM [None]
